FAERS Safety Report 6766984-1 (Version None)
Quarter: 2010Q2

REPORT INFORMATION
  Report Type: 
  Country: None (occurrence: None)
  Receive Date: 20100611
  Receipt Date: 20100602
  Transmission Date: 20101027
  Serious: Yes (Hospitalization)
  Sender: FDA-Public Use
  Company Number: PT-AMGEN-QUU416183

PATIENT
  Sex: Female
  Weight: 66 kg

DRUGS (4)
  1. ENBREL [Suspect]
     Indication: PSORIATIC ARTHROPATHY
     Route: 058
     Dates: start: 20080118, end: 20091015
  2. FOLIC ACID [Concomitant]
     Route: 048
     Dates: start: 19971021
  3. PREDNISOLONE [Concomitant]
     Dosage: VARIABLE DOSE
     Route: 048
  4. LEDERTREXATO [Concomitant]
     Route: 048
     Dates: start: 19971021

REACTIONS (2)
  - MOTOR DYSFUNCTION [None]
  - VISUAL IMPAIRMENT [None]
